FAERS Safety Report 8132773-9 (Version None)
Quarter: 2012Q1

REPORT INFORMATION
  Report Type: 
  Country: None (occurrence: None)
  Receive Date: 20120213
  Receipt Date: 20120208
  Transmission Date: 20120608
  Serious: Yes (Hospitalization)
  Sender: FDA-Public Use
  Company Number: US-ROXANE LABORATORIES, INC.-2009-RO-00354RO

PATIENT
  Sex: Female
  Weight: 70 kg

DRUGS (12)
  1. PREDNISONE TAB [Suspect]
     Indication: DIFFUSE LARGE B-CELL LYMPHOMA
     Route: 048
     Dates: start: 20090320, end: 20090710
  2. ENZASTAURIN [Suspect]
     Indication: DIFFUSE LARGE B-CELL LYMPHOMA
     Dosage: 1125 MG
     Route: 048
     Dates: start: 20090321, end: 20090321
  3. VINCRISTINE [Suspect]
     Indication: DIFFUSE LARGE B-CELL LYMPHOMA
     Route: 042
     Dates: start: 20090320, end: 20090710
  4. LEVOTHYROXINE SODIUM [Concomitant]
     Indication: HYPOTHYROIDISM
     Dates: start: 20090303
  5. RITUXIMAB [Suspect]
     Indication: DIFFUSE LARGE B-CELL LYMPHOMA
     Route: 042
     Dates: start: 20090320, end: 20090710
  6. DOXORUBICIN HCL [Suspect]
     Indication: DIFFUSE LARGE B-CELL LYMPHOMA
     Route: 042
     Dates: start: 20090320, end: 20090710
  7. SIMVASTATIN [Concomitant]
     Indication: HYPERLIPIDAEMIA
     Dates: start: 20090303
  8. CYCLOPHOSPHAMIDE [Suspect]
     Indication: DIFFUSE LARGE B-CELL LYMPHOMA
     Route: 042
     Dates: start: 20090320, end: 20090710
  9. LISINOPRIL [Concomitant]
     Indication: HYPERTENSION
     Dates: start: 20090303
  10. NEXIUM [Concomitant]
  11. HYDROMORPHONE HCL [Concomitant]
     Dates: start: 20090312, end: 20090401
  12. ENZASTAURIN [Suspect]
     Dosage: 500 MG
     Route: 048
     Dates: start: 20090322

REACTIONS (5)
  - FEMORAL NECK FRACTURE [None]
  - ABDOMINAL PAIN UPPER [None]
  - NEUTROPENIA [None]
  - NAUSEA [None]
  - FALL [None]
